FAERS Safety Report 6980308-6 (Version None)
Quarter: 2010Q3

REPORT INFORMATION
  Report Type: 
  Country: None (occurrence: None)
  Receive Date: 20100914
  Receipt Date: 20100906
  Transmission Date: 20110219
  Serious: Yes (Hospitalization)
  Sender: FDA-Public Use
  Company Number: JP-ROCHE-725860

PATIENT
  Sex: Female
  Weight: 65 kg

DRUGS (3)
  1. ACTEMRA [Suspect]
     Indication: RHEUMATOID ARTHRITIS
     Route: 041
     Dates: start: 20100506, end: 20100506
  2. ACTEMRA [Suspect]
     Route: 041
     Dates: start: 20100527, end: 20100527
  3. ACTEMRA [Suspect]
     Route: 041
     Dates: start: 20100624

REACTIONS (1)
  - ARTHRALGIA [None]
